FAERS Safety Report 6651138-X (Version None)
Quarter: 2010Q1

REPORT INFORMATION
  Report Type: 
  Country: None (occurrence: None)
  Receive Date: 20100323
  Receipt Date: 20100318
  Transmission Date: 20100710
  Serious: Yes (Hospitalization)
  Sender: FDA-Public Use
  Company Number: WAES 1003USA02801

PATIENT
  Age: 60 Year
  Sex: Female
  Weight: 101.6057 kg

DRUGS (8)
  1. DECADRON [Suspect]
     Indication: DRUG THERAPY
     Dosage: 8 MG/Q8H/PO
     Route: 048
     Dates: start: 20091207
  2. MEMANTINE HCL [Suspect]
     Dosage: PO
     Route: 048
     Dates: start: 20091211
  3. NOVOLOG [Suspect]
     Indication: TYPE 1 DIABETES MELLITUS
     Dosage: 50 UNITS/AM/SC; 50 UNITS/AM
     Route: 058
  4. TYLENOL-500 [Concomitant]
  5. VERAPAMIL ER [Concomitant]
  6. HYDROCODONE BITARTRATE [Concomitant]
  7. VITAMIN D (UNSPECIFIED) [Concomitant]
  8. VITAMINS (UNSPECIFIED) [Concomitant]

REACTIONS (6)
  - DIABETES MELLITUS INADEQUATE CONTROL [None]
  - METASTASES TO BONE [None]
  - METASTASES TO LIVER [None]
  - PNEUMONIA [None]
  - TREATMENT NONCOMPLIANCE [None]
  - VAGINITIS BACTERIAL [None]
